FAERS Safety Report 12443687 (Version 1)
Quarter: 2016Q2

REPORT INFORMATION
  Report Type: Spontaneous
  Country: IL (occurrence: IL)
  Receive Date: 20160607
  Receipt Date: 20160607
  Transmission Date: 20160815
  Serious: Yes (Other)
  Sender: FDA-Public Use
  Company Number: IL-ELI_LILLY_AND_COMPANY-IL201606001002

PATIENT
  Age: 62 Year
  Sex: Male
  Weight: 104 kg

DRUGS (5)
  1. LANTUS [Concomitant]
     Active Substance: INSULIN GLARGINE
     Dosage: UNK, UNKNOWN
  2. AMARYL [Concomitant]
     Active Substance: GLIMEPIRIDE
     Dosage: UNK, UNKNOWN
  3. METFORMIN [Concomitant]
     Active Substance: METFORMIN HYDROCHLORIDE
     Dosage: UNK, UNKNOWN
  4. TOUJEO [Concomitant]
     Active Substance: INSULIN GLARGINE
     Dosage: UNK, UNKNOWN
  5. TRULICITY [Suspect]
     Active Substance: DULAGLUTIDE
     Indication: PRODUCT USED FOR UNKNOWN INDICATION
     Dosage: UNK UNK, UNKNOWN
     Route: 065
     Dates: start: 20160529

REACTIONS (4)
  - Dyspnoea [Unknown]
  - Burning sensation [Unknown]
  - Vomiting [Unknown]
  - Chest discomfort [Unknown]

NARRATIVE: CASE EVENT DATE: 20160530
